FAERS Safety Report 23615871 (Version 2)
Quarter: 2024Q2

REPORT INFORMATION
  Report Type: Spontaneous
  Country: CA (occurrence: CA)
  Receive Date: 20240311
  Receipt Date: 20240503
  Transmission Date: 20240716
  Serious: Yes (Other)
  Sender: FDA-Public Use
  Company Number: US-TAIHOP-2023-010647

PATIENT
  Sex: Male

DRUGS (3)
  1. LONSURF [Suspect]
     Active Substance: TIPIRACIL HYDROCHLORIDE\TRIFLURIDINE
     Indication: Colorectal cancer stage IV
     Dosage: FREQUENCY AND FORM STRENGTH WERE UNKNOWN?CYCLE 2
     Route: 048
  2. LONSURF [Suspect]
     Active Substance: TIPIRACIL HYDROCHLORIDE\TRIFLURIDINE
     Dosage: FREQUENCY UNKNOWN; CURRENT CYCLE 4
     Route: 048
  3. AVASTIN [Suspect]
     Active Substance: BEVACIZUMAB
     Indication: Colorectal cancer metastatic

REACTIONS (9)
  - Drug ineffective [Unknown]
  - Dehydration [Unknown]
  - Somnolence [Unknown]
  - Sleep disorder [Unknown]
  - Neutropenia [Unknown]
  - Fatigue [Unknown]
  - Constipation [Unknown]
  - Decreased appetite [Unknown]
  - Gastrointestinal disorder [Unknown]
